FAERS Safety Report 7378823-9 (Version None)
Quarter: 2011Q1

REPORT INFORMATION
  Report Type: 
  Country: None (occurrence: None)
  Receive Date: 20110328
  Receipt Date: 20110314
  Transmission Date: 20110831
  Serious: Yes (Other)
  Sender: FDA-Public Use
  Company Number: PHHY2011NL22465

PATIENT
  Sex: Male

DRUGS (2)
  1. ZOMETA [Suspect]
     Indication: PROSTATE CANCER METASTATIC
     Dosage: 4 MG/ 5 ML
     Route: 042
     Dates: start: 20091201, end: 20110314
  2. SODIUM CHLORIDE [Concomitant]
     Dosage: 0.9% 100 ML

REACTIONS (1)
  - TERMINAL STATE [None]
